FAERS Safety Report 22599366 (Version 2)
Quarter: 2023Q2

REPORT INFORMATION
  Report Type: Spontaneous
  Country: GB (occurrence: GB)
  Receive Date: 20230614
  Receipt Date: 20230628
  Transmission Date: 20230721
  Serious: Yes (Hospitalization, Other)
  Sender: FDA-Public Use
  Company Number: GB-MYLANLABS-2023M1061982

PATIENT
  Sex: Male
  Weight: 56.7 kg

DRUGS (16)
  1. CLOZARIL [Suspect]
     Active Substance: CLOZAPINE
     Indication: Schizophrenia
     Dosage: 275 MILLIGRAM, QD, (ONCE A NIGHT)
     Route: 048
     Dates: start: 20030617
  2. AMISULPRIDE [Concomitant]
     Active Substance: AMISULPRIDE
     Dosage: 100 MILLIGRAM, QD, (ONCE IN MORNING)
     Route: 048
  3. AMISULPRIDE [Concomitant]
     Active Substance: AMISULPRIDE
     Dosage: 150 MILLIGRAM, QD, (ONCE AT NIGHT)
     Route: 048
  4. AMLODIPINE [Concomitant]
     Active Substance: AMLODIPINE BESYLATE
     Dosage: 10 MILLIGRAM, QD, (ONCE DAILY)
     Route: 048
  5. ATORVASTATIN [Concomitant]
     Active Substance: ATORVASTATIN
     Dosage: 40 MILLIGRAM, QD, (ONCE DAILY)
     Route: 048
  6. BISACODYL [Concomitant]
     Active Substance: BISACODYL
     Dosage: 5 MILLIGRAM, QD, (ONCE AT NIGHT)
     Route: 048
  7. CLOPIDOGREL [Concomitant]
     Active Substance: CLOPIDOGREL BISULFATE
     Dosage: 75 MILLIGRAM, QD, (ONCE DAILY)
     Route: 048
  8. DOCUSATE [Concomitant]
     Active Substance: DOCUSATE
     Dosage: 200 MILLIGRAM, BID, (TWICE DAILY)
     Route: 048
  9. FOLIC ACID [Concomitant]
     Active Substance: FOLIC ACID
     Dosage: 5 MILLIGRAM, QD, (ONCE DAILY)
     Route: 048
  10. SCOPOLAMINE HYDROBROMIDE [Concomitant]
     Active Substance: SCOPOLAMINE HYDROBROMIDE
     Dosage: 300 MICROGRAM, BID, (TWICE DAILY)
     Route: 048
  11. PIRENZEPINE [Concomitant]
     Active Substance: PIRENZEPINE
     Dosage: 50 MILLIGRAM, BID, (TWICE DAILY)
     Route: 048
  12. LANSOPRAZOLE [Concomitant]
     Active Substance: LANSOPRAZOLE
     Dosage: 15 MILLIGRAM, QD, (ONCE DAILY)
     Route: 048
  13. LOSARTAN [Concomitant]
     Active Substance: LOSARTAN
     Dosage: 50 MILLIGRAM, QD, (ONCE DAILY)
     Route: 048
  14. POLYETHYLENE GLYCOLS [Concomitant]
     Active Substance: POLYETHYLENE GLYCOLS
     Dosage: 1 DOSAGE FORM, QD  (1SACHET ONCE DAILY)
     Route: 048
  15. SENNA [Concomitant]
     Active Substance: SENNA LEAF\SENNOSIDES\SENNOSIDES A AND B
     Dosage: 15 MILLIGRAM, QD, (ONCE AT NIGHT)
     Route: 048
  16. PROPRANOLOL [Concomitant]
     Active Substance: PROPRANOLOL HYDROCHLORIDE
     Dosage: 80 MILLIGRAM, QD, (ONCE DAILY)
     Route: 048

REACTIONS (1)
  - Necrosis [Not Recovered/Not Resolved]

NARRATIVE: CASE EVENT DATE: 20221001
